FAERS Safety Report 14193055 (Version 3)
Quarter: 2018Q1

REPORT INFORMATION
  Report Type: Report from Study
  Country: US (occurrence: US)
  Receive Date: 20171115
  Receipt Date: 20180131
  Transmission Date: 20180508
  Serious: Yes (Hospitalization)
  Sender: FDA-Public Use
  Company Number: PHEH2017US036813

PATIENT
  Sex: Male

DRUGS (1)
  1. TOBI [Suspect]
     Active Substance: TOBRAMYCIN
     Indication: PNEUMONIA PSEUDOMONAL
     Route: 065

REACTIONS (5)
  - Haemoptysis [Unknown]
  - Influenza [Unknown]
  - Product use in unapproved indication [Unknown]
  - Lung infection [Unknown]
  - Pneumonia [Unknown]
